FAERS Safety Report 6717459-7 (Version None)
Quarter: 2010Q2

REPORT INFORMATION
  Report Type: 
  Country: None (occurrence: None)
  Receive Date: 20100510
  Receipt Date: 20100502
  Transmission Date: 20101027
  Serious: Yes (Other)
  Sender: FDA-Public Use
  Company Number: IL-ROCHE-700696

PATIENT
  Sex: Female
  Weight: 66 kg

DRUGS (3)
  1. PEGASYS [Suspect]
     Indication: HEPATITIS C
     Route: 058
     Dates: start: 20091213, end: 20100418
  2. NOVONORM [Concomitant]
     Dosage: DOSE- 0.5
     Route: 048
  3. COPEGUS [Concomitant]
     Indication: HEPATITIS C
     Dates: start: 20091213, end: 20100401

REACTIONS (2)
  - EYE HAEMORRHAGE [None]
  - VISION BLURRED [None]
